FAERS Safety Report 8332727-3 (Version None)
Quarter: 2012Q2

REPORT INFORMATION
  Report Type: 
  Country: None (occurrence: None)
  Receive Date: 20120503
  Receipt Date: 20120418
  Transmission Date: 20120825
  Serious: Yes (Other)
  Sender: FDA-Public Use
  Company Number: CN-JNJFOC-20120501245

PATIENT
  Sex: Male
  Weight: 50 kg

DRUGS (1)
  1. KETOCONAZOLE [Suspect]
     Indication: GENITAL INFECTION FUNGAL
     Dosage: FREQUENCY 1, INTERVAL 1 (DURATION OF INTERVAL, NOT SPECIFIED).
     Route: 048
     Dates: start: 20110707, end: 20110707

REACTIONS (1)
  - ANAPHYLACTOID REACTION [None]
